FAERS Safety Report 11277513 (Version 1)
Quarter: 2015Q3

REPORT INFORMATION
  Report Type: Spontaneous
  Country: GB (occurrence: GB)
  Receive Date: 20150716
  Receipt Date: 20150716
  Transmission Date: 20151125
  Serious: Yes (Death)
  Sender: FDA-Public Use
  Company Number: GB-MERZ NORTH AMERICA, INC.-15MRZ-00303

PATIENT
  Age: 46 Year
  Sex: Male

DRUGS (11)
  1. ASPIRIN. [Concomitant]
     Active Substance: ASPIRIN
  2. MIRTAZAPINE. [Concomitant]
     Active Substance: MIRTAZAPINE
  3. XEOMIN [Suspect]
     Active Substance: INCOBOTULINUMTOXINA
     Indication: URINARY INCONTINENCE
     Dates: start: 20150608, end: 20150608
  4. QUETIAPINE [Concomitant]
     Active Substance: QUETIAPINE
  5. ANAESTHETICS [Concomitant]
     Active Substance: UNSPECIFIED INGREDIENT
     Indication: CYSTOSCOPY
     Dates: start: 20150608, end: 20150608
  6. DESMOPRESSIN [Concomitant]
     Active Substance: DESMOPRESSIN
  7. LACTULOSE. [Concomitant]
     Active Substance: LACTULOSE
  8. CLOPIDOGREL [Concomitant]
     Active Substance: CLOPIDOGREL BISULFATE
  9. METFORMIN [Concomitant]
     Active Substance: METFORMIN HYDROCHLORIDE
  10. OMEPRAZOLE. [Concomitant]
     Active Substance: OMEPRAZOLE
  11. SIMVASTATIN. [Concomitant]
     Active Substance: SIMVASTATIN

REACTIONS (5)
  - Portal venous gas [Fatal]
  - Off label use [None]
  - Sepsis [Fatal]
  - Intestinal ischaemia [Fatal]
  - Abdominal distension [Fatal]

NARRATIVE: CASE EVENT DATE: 201506
